FAERS Safety Report 11096795 (Version 1)
Quarter: 2015Q2

REPORT INFORMATION
  Report Type: Spontaneous
  Country: US (occurrence: None)
  Receive Date: 20150505
  Receipt Date: 20150505
  Transmission Date: 20150821
  Serious: Yes (Other)
  Sender: FDA-Public Use
  Company Number: DEP_02705_2015

PATIENT
  Sex: Female
  Weight: 63.5 kg

DRUGS (2)
  1. NUCYNTA [Suspect]
     Active Substance: TAPENTADOL HYDROCHLORIDE
     Indication: KYPHOSIS
     Dosage: (100 MG BID?(100 MG QID ORAL)
     Route: 048
     Dates: start: 201303
  2. CYMBALTA [Concomitant]
     Active Substance: DULOXETINE HYDROCHLORIDE

REACTIONS (5)
  - Dissociation [None]
  - Fatigue [None]
  - Energy increased [None]
  - Euphoric mood [None]
  - Dependence [None]
